FAERS Safety Report 6488568-5 (Version None)
Quarter: 2009Q4

REPORT INFORMATION
  Report Type: 
  Country: None (occurrence: None)
  Receive Date: 20091210
  Receipt Date: 20091201
  Transmission Date: 20100525
  Serious: Yes (Hospitalization)
  Sender: FDA-Public Use
  Company Number: US-SANOFI-AVENTIS-200919558US

PATIENT
  Age: 69 Year
  Sex: Male

DRUGS (10)
  1. LANTUS [Suspect]
     Dosage: DOWN TO 4-5 UNITS PER EVENING
     Route: 058
     Dates: start: 19800101
  2. NPH INSULIN [Concomitant]
     Dosage: DOSE: UNK
     Route: 065
  3. OXYGEN [Concomitant]
     Dosage: DOSE: UNK
  4. NITROGLYCERIN [Concomitant]
     Dosage: DOSE: UNK
     Route: 065
  5. HERBAL PREPARATION [Concomitant]
     Dosage: DOSE: UNK
     Route: 065
  6. LEVAQUIN [Concomitant]
     Route: 065
  7. METOLAZONE [Concomitant]
     Route: 065
  8. TRICOR [Concomitant]
     Route: 065
  9. MULTIVITAMIN [Concomitant]
     Route: 065
  10. ALL OTHER THERAPEUTIC PRODUCTS [Concomitant]
     Dosage: WAS ON 51 MEDS (BUT STILL ON 24 PRESCRIPTION MEDS NOS).
     Route: 065

REACTIONS (2)
  - CARDIAC FAILURE CONGESTIVE [None]
  - RENAL FAILURE [None]
